FAERS Safety Report 12922203 (Version 1)
Quarter: 2016Q4

REPORT INFORMATION
  Report Type: Report from Study
  Country: US (occurrence: US)
  Receive Date: 20161108
  Receipt Date: 20161108
  Transmission Date: 20170207
  Serious: Yes (Hospitalization, Other)
  Sender: FDA-Public Use
  Company Number: US-ASTELLAS-2016US044000

PATIENT

DRUGS (6)
  1. LEUCOVORIN                         /00566701/ [Suspect]
     Active Substance: LEUCOVORIN
     Indication: COLORECTAL CANCER METASTATIC
     Dosage: 400 MG/M2, OTHER (MORE THAN 2 HOURS)
     Route: 042
  2. 5-FU                               /00098801/ [Suspect]
     Active Substance: FLUOROURACIL
     Indication: COLORECTAL CANCER METASTATIC
     Route: 040
  3. 5-FU                               /00098801/ [Suspect]
     Active Substance: FLUOROURACIL
     Dosage: 2.4G/M2, 46 HOURS INFUSION
     Route: 042
  4. BEVACIZUMAB [Suspect]
     Active Substance: BEVACIZUMAB
     Indication: COLORECTAL CANCER METASTATIC
     Route: 042
  5. ERLOTINIB [Suspect]
     Active Substance: ERLOTINIB
     Indication: COLORECTAL CANCER METASTATIC
     Dosage: 150 MG, ONCE DAILY CONTINUOUSLY
     Route: 048
  6. OXALIPLATIN. [Suspect]
     Active Substance: OXALIPLATIN
     Indication: COLORECTAL CANCER METASTATIC
     Dosage: 85 MG/M2, OTHER (MORE THAN 2 HOURS)
     Route: 042

REACTIONS (9)
  - Hypersensitivity [Unknown]
  - Abdominal pain [Unknown]
  - Haemorrhage [Unknown]
  - Neuropathy peripheral [Unknown]
  - Thrombocytopenia [Unknown]
  - Neutropenia [Unknown]
  - Small intestinal obstruction [Unknown]
  - Anaemia [Unknown]
  - Febrile neutropenia [Unknown]
